FAERS Safety Report 10467472 (Version 3)
Quarter: 2015Q1

REPORT INFORMATION
  Report Type: Spontaneous
  Country: CN (occurrence: CN)
  Receive Date: 20140922
  Receipt Date: 20150105
  Transmission Date: 20150720
  Serious: Yes (Other)
  Sender: FDA-Public Use
  Company Number: CN-BAYER-2014-136590

PATIENT
  Sex: Female

DRUGS (1)
  1. GLUCOBAY [Suspect]
     Active Substance: ACARBOSE
     Dosage: UNK

REACTIONS (4)
  - Product colour issue [None]
  - Dizziness [None]
  - Discomfort [None]
  - Diabetes mellitus inadequate control [None]
